FAERS Safety Report 14519595 (Version 1)
Quarter: 2018Q1

REPORT INFORMATION
  Report Type: Spontaneous
  Country: US (occurrence: US)
  Receive Date: 20180210
  Receipt Date: 20180210
  Transmission Date: 20180509
  Serious: No
  Sender: FDA-Public Use
  Company Number: None

PATIENT
  Age: 3 Year
  Sex: Male
  Weight: 19 kg

DRUGS (2)
  1. CEFDINIR. [Suspect]
     Active Substance: CEFDINIR
     Indication: EAR INFECTION
     Dosage: ?          QUANTITY:60 ML;?
     Route: 048
     Dates: start: 20180201, end: 20180206
  2. FISH OIL [Concomitant]
     Active Substance: FISH OIL

REACTIONS (5)
  - Crying [None]
  - Irritability [None]
  - Abnormal behaviour [None]
  - Rash [None]
  - Screaming [None]

NARRATIVE: CASE EVENT DATE: 20180203
